FAERS Safety Report 11706886 (Version 1)
Quarter: 2015Q4

REPORT INFORMATION
  Report Type: Spontaneous
  Country: US (occurrence: US)
  Receive Date: 20151106
  Receipt Date: 20151106
  Transmission Date: 20160304
  Serious: Yes (Death)
  Sender: FDA-Public Use
  Company Number: US-ACTELION-A-NJ2015-126929

PATIENT
  Age: 58 Year
  Sex: Male

DRUGS (1)
  1. VENTAVIS [Suspect]
     Active Substance: ILOPROST
     Indication: PULMONARY HYPERTENSION
     Dosage: UNK, 6-9X/DAY
     Route: 055
     Dates: start: 20150204, end: 20151101

REACTIONS (1)
  - Death [Fatal]

NARRATIVE: CASE EVENT DATE: 20151101
